FAERS Safety Report 16522321 (Version 6)
Quarter: 2022Q3

REPORT INFORMATION
  Report Type: Spontaneous
  Country: US (occurrence: US)
  Receive Date: 20190703
  Receipt Date: 20220906
  Transmission Date: 20221027
  Serious: No
  Sender: FDA-Public Use
  Company Number: US-PFIZER INC-2019280880

PATIENT
  Age: 5 Year
  Sex: Female

DRUGS (3)
  1. SIROLIMUS [Suspect]
     Active Substance: SIROLIMUS
     Indication: Vascular malformation
     Dosage: UNK, DAILY
     Route: 061
     Dates: start: 201605
  2. RAPAMUNE [Suspect]
     Active Substance: SIROLIMUS
     Indication: Arteriovenous malformation
     Dosage: 1.8 ML, 2X/DAY
     Route: 048
     Dates: start: 201604
  3. SIROLIMUS [Suspect]
     Active Substance: SIROLIMUS
     Dosage: 2 ML, 2X/DAY
     Route: 048

REACTIONS (4)
  - Platelet count decreased [Unknown]
  - Off label use [Unknown]
  - Off label use [Unknown]
  - Off label use [Unknown]
